FAERS Safety Report 8553690-6 (Version None)
Quarter: 2012Q3

REPORT INFORMATION
  Report Type: 
  Country: None (occurrence: None)
  Receive Date: 20120731
  Receipt Date: 20120717
  Transmission Date: 20120928
  Serious: Yes (Hospitalization)
  Sender: FDA-Public Use
  Company Number: JP-009507513-1206USA03264

PATIENT

DRUGS (9)
  1. ONEALFA [Concomitant]
     Indication: OSTEOPOROSIS
     Dosage: 0.5 MICROGRAM, QD
     Route: 048
  2. OMEPRAZOLE [Suspect]
     Indication: GASTRITIS
     Dosage: 10 MG, QD
     Route: 048
  3. MOBIC [Concomitant]
     Dosage: 10 MG, QD
     Route: 048
     Dates: end: 20111224
  4. ADENOSINE [Concomitant]
     Dosage: 1 G, QD
     Route: 048
  5. KARY UNI [Concomitant]
     Dosage: UNK
  6. NOVASAC [Concomitant]
     Indication: HYPERTENSION
     Dosage: 5 MG, QD
     Route: 048
  7. ALENDRONATE SODIUM [Suspect]
     Indication: OSTEOPOROSIS
     Dosage: 35 MG, QW
     Route: 048
     Dates: start: 20090601, end: 20111224
  8. VITAMIN B12 [Concomitant]
     Dosage: 1500 ?G, UNK
     Route: 048
  9. NIFLAN [Concomitant]
     Dosage: UNK

REACTIONS (1)
  - FEMUR FRACTURE [None]
